FAERS Safety Report 4453000-X (Version None)
Quarter: 2004Q3

REPORT INFORMATION
  Report Type: 
  Country: None (occurrence: None)
  Receive Date: 20040916
  Receipt Date: 20040903
  Transmission Date: 20050211
  Serious: Yes (Disabling)
  Sender: FDA-Public Use
  Company Number: 04P-163-0258801-00

PATIENT
  Age: 58 Year
  Sex: Male

DRUGS (4)
  1. HUMIRA [Suspect]
     Indication: RHEUMATOID ARTHRITIS
     Dosage: 40 MG, SUBCUTANEOUS
     Route: 058
     Dates: start: 20040123, end: 20040223
  2. PREDNISONE [Concomitant]
  3. CELECOXIB [Concomitant]
  4. RISEDRONATE SODIUM [Concomitant]

REACTIONS (3)
  - DYSPNOEA [None]
  - GUILLAIN-BARRE SYNDROME [None]
  - NERVOUS SYSTEM DISORDER [None]
